FAERS Safety Report 9661595 (Version 2)
Quarter: 2013Q4

REPORT INFORMATION
  Report Type: Spontaneous
  Country: US (occurrence: US)
  Receive Date: 20131031
  Receipt Date: 20131031
  Transmission Date: 20140711
  Serious: No
  Sender: FDA-Public Use
  Company Number: US-PURDUE-USA-2010-0053839

PATIENT
  Age: 50 Year
  Sex: Female

DRUGS (1)
  1. OXYCONTIN (NDA 22-272) [Suspect]
     Indication: PAIN
     Dosage: 20 MG, TID
     Route: 048
     Dates: start: 20100908, end: 20110727

REACTIONS (6)
  - Drug withdrawal syndrome [Unknown]
  - Migraine [Unknown]
  - Hyperhidrosis [Unknown]
  - Formication [Unknown]
  - Feeling abnormal [Unknown]
  - Unevaluable event [Unknown]
